FAERS Safety Report 6645680-5 (Version None)
Quarter: 2010Q1

REPORT INFORMATION
  Report Type: 
  Country: None (occurrence: None)
  Receive Date: 20100319
  Receipt Date: 20100319
  Transmission Date: 20100710
  Serious: Yes (Other)
  Sender: FDA-Public Use
  Company Number: None

PATIENT
  Age: 2 Year
  Sex: Female
  Weight: 15.8759 kg

DRUGS (1)
  1. NYSTATIN [Suspect]
     Indication: DERMATITIS DIAPER
     Dosage: 15G 3 TIMES/DAY TOP
     Route: 061
     Dates: start: 20100111, end: 20100316

REACTIONS (1)
  - ECZEMA [None]
